FAERS Safety Report 9668351 (Version 1)
Quarter: 2013Q4

REPORT INFORMATION
  Report Type: Report from Study
  Country: DE (occurrence: DE)
  Receive Date: 20131104
  Receipt Date: 20131104
  Transmission Date: 20140711
  Serious: Yes (Hospitalization)
  Sender: FDA-Public Use
  Company Number: DE-ABBVIE-13P-062-1164242-00

PATIENT
  Age: 49 Year
  Sex: Female
  Weight: 75 kg

DRUGS (8)
  1. HUMIRA [Suspect]
     Indication: RHEUMATOID ARTHRITIS
  2. HUMIRA [Suspect]
     Route: 058
     Dates: start: 201304, end: 201307
  3. LEFLUNOMIDE [Suspect]
     Indication: PRODUCT USED FOR UNKNOWN INDICATION
     Dates: start: 201109, end: 201304
  4. PREDNISOLONE [Concomitant]
     Indication: PRODUCT USED FOR UNKNOWN INDICATION
     Dosage: PULSE THERAPY WITH REDUCTION
     Dates: start: 201304, end: 201307
  5. PREDNISOLONE [Concomitant]
     Dates: start: 2013
  6. CHOLECALCIFEROL [Concomitant]
     Indication: PRODUCT USED FOR UNKNOWN INDICATION
  7. OMEPRAZOLE [Concomitant]
     Indication: PRODUCT USED FOR UNKNOWN INDICATION
  8. LEVOTHYROXINE [Concomitant]
     Indication: PRODUCT USED FOR UNKNOWN INDICATION

REACTIONS (6)
  - Bronchitis [Recovered/Resolved]
  - Tenosynovitis [Unknown]
  - Polyarthritis [Unknown]
  - Renal disorder [Unknown]
  - Dysphonia [Unknown]
  - Drug ineffective [Unknown]
